FAERS Safety Report 9179167 (Version 1)
Quarter: 2013Q1

REPORT INFORMATION
  Report Type: Spontaneous
  Country: US (occurrence: US)
  Receive Date: 20130321
  Receipt Date: 20130321
  Transmission Date: 20140127
  Serious: Yes (Death, Hospitalization)
  Sender: FDA-Public Use
  Company Number: US-GLAXOSMITHKLINE-A1015967A

PATIENT
  Age: 57 Year
  Sex: Female

DRUGS (6)
  1. ADVAIR [Suspect]
     Indication: CHRONIC OBSTRUCTIVE PULMONARY DISEASE
     Dosage: 1PUFF TWICE PER DAY
     Route: 055
     Dates: start: 201107, end: 20121231
  2. SINGULAIR [Concomitant]
  3. VITAMIN D [Concomitant]
  4. PREDNISONE [Concomitant]
  5. LEVOQUIN [Concomitant]
  6. VENTILATION [Concomitant]

REACTIONS (5)
  - Respiratory failure [Fatal]
  - Pneumonia [Fatal]
  - Hypoxia [Unknown]
  - Chronic obstructive pulmonary disease [Fatal]
  - Malnutrition [Fatal]
